FAERS Safety Report 10160013 (Version 2)
Quarter: 2014Q4

REPORT INFORMATION
  Report Type: Spontaneous
  Country: US (occurrence: US)
  Receive Date: 20140508
  Receipt Date: 20141201
  Transmission Date: 20150528
  Serious: No
  Sender: FDA-Public Use
  Company Number: US-GLAXOSMITHKLINE-A1055180A

PATIENT
  Age: 62 Year
  Sex: Female

DRUGS (6)
  1. XELODA [Concomitant]
     Active Substance: CAPECITABINE
  2. HERCEPTIN [Concomitant]
     Active Substance: TRASTUZUMAB
  3. TYKERB [Suspect]
     Active Substance: LAPATINIB DITOSYLATE
     Indication: BREAST CANCER
     Dosage: 750 MG, 1D
     Route: 048
     Dates: start: 20131221
  4. TYKERB [Suspect]
     Active Substance: LAPATINIB DITOSYLATE
     Dates: start: 20131221
  5. LETROZOLE. [Concomitant]
     Active Substance: LETROZOLE
  6. TYKERB [Suspect]
     Active Substance: LAPATINIB DITOSYLATE
     Dates: start: 20131221

REACTIONS (13)
  - Chromaturia [Unknown]
  - Palmar-plantar erythrodysaesthesia syndrome [Not Recovered/Not Resolved]
  - Nasopharyngitis [Recovered/Resolved]
  - Diarrhoea [Unknown]
  - Asthenia [Unknown]
  - Fatigue [Recovering/Resolving]
  - Hepatic pain [Not Recovered/Not Resolved]
  - Feeling abnormal [Not Recovered/Not Resolved]
  - Rhinorrhoea [Unknown]
  - Nausea [Unknown]
  - Insomnia [Unknown]
  - Adverse drug reaction [Unknown]
  - Cough [Unknown]

NARRATIVE: CASE EVENT DATE: 20131228
